FAERS Safety Report 10888104 (Version 1)
Quarter: 2015Q1

REPORT INFORMATION
  Report Type: Spontaneous
  Country: US (occurrence: US)
  Receive Date: 20150304
  Receipt Date: 20150304
  Transmission Date: 20150721
  Serious: No
  Sender: FDA-Public Use
  Company Number: US-AMGEN-USASP2014035025

PATIENT
  Age: 51 Year
  Sex: Female
  Weight: 54.42 kg

DRUGS (1)
  1. ENBREL [Suspect]
     Active Substance: ETANERCEPT
     Indication: PSORIASIS
     Dosage: 50 MG, 2 TIMES/WK
     Route: 058
     Dates: start: 20140508

REACTIONS (5)
  - Skin fissures [Not Recovered/Not Resolved]
  - Dry skin [Not Recovered/Not Resolved]
  - Rash pustular [Not Recovered/Not Resolved]
  - Skin exfoliation [Not Recovered/Not Resolved]
  - Psoriasis [Not Recovered/Not Resolved]
